FAERS Safety Report 4620567-8 (Version None)
Quarter: 2005Q1

REPORT INFORMATION
  Report Type: 
  Country: None (occurrence: None)
  Receive Date: 20050324
  Receipt Date: 20050302
  Transmission Date: 20050727
  Serious: Yes (Other)
  Sender: FDA-Public Use
  Company Number: USA050392483

PATIENT
  Age: 54 Year
  Sex: Male

DRUGS (21)
  1. CYMBALTA [Suspect]
     Indication: DEPRESSION
     Dosage: 60 MG
     Dates: start: 20050130, end: 20050131
  2. MOBIC [Concomitant]
  3. ALLEGRA [Concomitant]
  4. ASPIRIN [Concomitant]
  5. LORTAB [Concomitant]
  6. ZETIA [Concomitant]
  7. MAGNESIUM SULFATE [Concomitant]
  8. MAGNESIUM GLUCONATE [Concomitant]
  9. COUMADIN [Concomitant]
  10. MIRALAX [Concomitant]
  11. LORTAB [Concomitant]
  12. PERCOCET [Concomitant]
  13. CLARINEX [Concomitant]
  14. LEVAQUIN [Concomitant]
  15. LASIX [Concomitant]
  16. PEPCID [Concomitant]
  17. REGLAN [Concomitant]
  18. METOPROLOL TARTRATE [Concomitant]
  19. HEPARIN [Concomitant]
  20. MAGNESIUM OXIDE [Concomitant]
  21. LOPRESSOR [Concomitant]

REACTIONS (3)
  - CONVULSION [None]
  - ELECTROENCEPHALOGRAM ABNORMAL [None]
  - SYNCOPE VASOVAGAL [None]
